FAERS Safety Report 9546796 (Version 6)
Quarter: 2014Q2

REPORT INFORMATION
  Report Type: Report from Study
  Country: BR (occurrence: BR)
  Receive Date: 20130924
  Receipt Date: 20140506
  Transmission Date: 20141212
  Serious: Yes (Hospitalization, Disabling, Other)
  Sender: FDA-Public Use
  Company Number: BR-ROCHE-710680

PATIENT
  Age: 70 Year
  Sex: Female
  Weight: 45 kg

DRUGS (16)
  1. ACTEMRA [Suspect]
     Indication: RHEUMATOID ARTHRITIS
     Dosage: FORM: INFUSION
     Route: 042
     Dates: start: 20091209, end: 20091209
  2. ACTEMRA [Suspect]
     Route: 042
     Dates: start: 20100101, end: 20100101
  3. ACTEMRA [Suspect]
     Route: 042
     Dates: start: 20100213, end: 20100213
  4. ACTEMRA [Suspect]
     Route: 042
     Dates: start: 20100310, end: 20100310
  5. ACTEMRA [Suspect]
     Dosage: TREATMENT DELAYED
     Route: 042
     Dates: start: 20100410, end: 20100410
  6. ACTEMRA [Suspect]
     Dosage: TREATMENT DELAYED
     Route: 042
     Dates: start: 20100510, end: 20100510
  7. ACTEMRA [Suspect]
     Route: 065
  8. DIGOXIN [Concomitant]
  9. NEPRESOL [Concomitant]
     Dosage: FREQUENCY: 40 MG/DAY (FASTING)
     Route: 065
  10. ARAVA [Concomitant]
     Dosage: STARTED IN BEGINNING OF 2009
     Route: 065
     Dates: start: 200901, end: 2010
  11. ENALAPRIL [Concomitant]
     Indication: HYPERTENSION
     Dosage: DRUG NAME: SANVAPRESS
     Route: 065
  12. RIVOTRIL [Concomitant]
     Dosage: AT NIGHT
     Route: 065
  13. METHOTREXATE [Concomitant]
     Indication: RHEUMATOID ARTHRITIS
     Route: 065
  14. FOLIC ACID [Concomitant]
     Indication: RHEUMATOID ARTHRITIS
     Route: 065
  15. PREDNISONE [Concomitant]
     Indication: RHEUMATOID ARTHRITIS
     Route: 065
  16. NAPROXEN [Concomitant]
     Indication: RHEUMATOID ARTHRITIS
     Route: 065

REACTIONS (16)
  - Gastrointestinal haemorrhage [Recovered/Resolved]
  - Weight decreased [Recovered/Resolved]
  - Gait disturbance [Not Recovered/Not Resolved]
  - Gastrointestinal haemorrhage [Recovered/Resolved]
  - Arthralgia [Not Recovered/Not Resolved]
  - Swelling [Not Recovered/Not Resolved]
  - Neck pain [Not Recovered/Not Resolved]
  - Spinal pain [Not Recovered/Not Resolved]
  - Feeling abnormal [Unknown]
  - Arthralgia [Not Recovered/Not Resolved]
  - Joint swelling [Not Recovered/Not Resolved]
  - Pain in extremity [Recovering/Resolving]
  - Drug dose omission [Unknown]
  - Pain [Not Recovered/Not Resolved]
  - Blood glucose abnormal [Unknown]
  - Blood cholesterol abnormal [Unknown]
